FAERS Safety Report 22005666 (Version 6)
Quarter: 2024Q2

REPORT INFORMATION
  Report Type: Spontaneous
  Country: US (occurrence: US)
  Receive Date: 20230217
  Receipt Date: 20240508
  Transmission Date: 20240716
  Serious: Yes (Other)
  Sender: FDA-Public Use
  Company Number: US-PFIZER INC-PV202300030408

PATIENT
  Age: 75 Year
  Sex: Female

DRUGS (1)
  1. IBRANCE [Suspect]
     Active Substance: PALBOCICLIB
     Dosage: 125 MG, DAILY (TAKE 1 TABLET)
     Route: 048

REACTIONS (4)
  - Cardiac operation [Unknown]
  - Malaise [Unknown]
  - Tremor [Not Recovered/Not Resolved]
  - Memory impairment [Unknown]
